FAERS Safety Report 8561200-2 (Version None)
Quarter: 2012Q3

REPORT INFORMATION
  Report Type: 
  Country: None (occurrence: None)
  Receive Date: 20120802
  Receipt Date: 20110719
  Transmission Date: 20120928
  Serious: No
  Sender: FDA-Public Use
  Company Number: US-BRISTOL-MYERS SQUIBB COMPANY-15886690

PATIENT
  Age: 49 Year
  Sex: Female

DRUGS (4)
  1. VIVELLE [Suspect]
     Dosage: 0.1MG PATCHES ON ARMS, FEET, LEGS EXCEPT BREAST
     Route: 062
  2. ESTRADIOL [Suspect]
  3. PREMARIN [Suspect]
  4. ESTRACE [Suspect]

REACTIONS (2)
  - MALAISE [None]
  - NAUSEA [None]
